FAERS Safety Report 8939581 (Version 1)
Quarter: 2012Q4

REPORT INFORMATION
  Report Type: 
  Country: CH (occurrence: CH)
  Receive Date: 20121130
  Receipt Date: 20121130
  Transmission Date: 20130627
  Serious: Yes (Death, Life-Threatening, Hospitalization, Other)
  Sender: FDA-Public Use
  Company Number: CH-ABBOTT-12P-151-0996475-00

PATIENT
  Age: 63 Year
  Sex: Female
  Weight: 100 kg

DRUGS (8)
  1. HUMIRA [Suspect]
     Indication: PRODUCT USED FOR UNKNOWN INDICATION
     Dates: start: 20040507, end: 200701
  2. HUMIRA [Suspect]
     Dates: start: 200704, end: 20070712
  3. HUMIRA [Suspect]
     Dosage: 3 injections in total
     Dates: start: 200804, end: 200805
  4. METHOTREXATE [Suspect]
     Indication: PRODUCT USED FOR UNKNOWN INDICATION
     Dosage: 10-15 MG
     Dates: start: 199708, end: 199905
  5. METHOTREXATE [Suspect]
     Dosage: 10-15 mg
     Dates: start: 200001, end: 200707
  6. METHOTREXATE [Suspect]
     Dosage: 10-15 mg
     Dates: start: 200807, end: 200910
  7. CORTICOSTEROIDS [Suspect]
     Indication: PRODUCT USED FOR UNKNOWN INDICATION
     Dosage: intermittent
  8. RITUXIMAB [Concomitant]
     Indication: PRODUCT USED FOR UNKNOWN INDICATION
     Dates: start: 20090421, end: 20090505

REACTIONS (2)
  - Pancreatic carcinoma [Fatal]
  - Toxoplasmosis [Recovered/Resolved]
